FAERS Safety Report 4450831-7 (Version None)
Quarter: 2004Q3

REPORT INFORMATION
  Report Type: 
  Country: None (occurrence: None)
  Receive Date: 20040916
  Receipt Date: 20011002
  Transmission Date: 20050211
  Serious: Yes (Other)
  Sender: FDA-Public Use
  Company Number: US-BRISTOL-MYERS SQUIBB COMPANY-11039278

PATIENT
  Age: 51 Year
  Sex: Male

DRUGS (19)
  1. STADOL [Suspect]
     Indication: MIGRAINE
     Route: 045
     Dates: start: 19990301, end: 20010801
  2. STADOL [Suspect]
     Indication: MIGRAINE
     Dosage: ROUTE OF ADMINISTRATION:  IM AND IV IM: 4 YEARS
     Route: 030
     Dates: start: 19980617, end: 20011201
  3. VISTARIL [Concomitant]
  4. NEURONTIN [Concomitant]
  5. OXYCONTIN [Concomitant]
  6. VALIUM [Concomitant]
  7. ASPIRIN [Concomitant]
  8. ASPIRIN [Concomitant]
  9. NITROGLYCERIN [Concomitant]
  10. SYNTHROID [Concomitant]
  11. LORTAB [Concomitant]
  12. PHENERGAN HCL [Concomitant]
  13. ULTRAM [Concomitant]
  14. CYCLOBENZAPRINE HCL [Concomitant]
  15. NORVASC [Concomitant]
  16. RESTORIL [Concomitant]
  17. ELAVIL [Concomitant]
  18. PREVACID [Concomitant]
  19. CALAN [Concomitant]

REACTIONS (2)
  - DEPENDENCE [None]
  - DRUG WITHDRAWAL SYNDROME [None]
